FAERS Safety Report 19019637 (Version 2)
Quarter: 2022Q3

REPORT INFORMATION
  Report Type: Report from Study
  Country: CA (occurrence: CA)
  Receive Date: 20210317
  Receipt Date: 20220712
  Transmission Date: 20221026
  Serious: Yes (Other)
  Sender: FDA-Public Use
  Company Number: CA-GLAXOSMITHKLINE-CA2021AMR061876

PATIENT

DRUGS (4)
  1. FLUTICASONE PROPIONATE\SALMETEROL XINAFOATE [Suspect]
     Active Substance: FLUTICASONE PROPIONATE\SALMETEROL XINAFOATE
     Indication: Chronic obstructive pulmonary disease
     Dosage: UNK
  2. ALBUTEROL [Suspect]
     Active Substance: ALBUTEROL
     Indication: Product used for unknown indication
     Dosage: UNK
  3. PULMICORT TURBUHALER [Suspect]
     Active Substance: BUDESONIDE
     Indication: Product used for unknown indication
     Dosage: UNK
  4. PULMICORT TURBUHALER [Suspect]
     Active Substance: BUDESONIDE
     Dosage: 3 PUFF(S), QD, 2 PUFFS MORNING AND 1 AT NIGHT

REACTIONS (4)
  - Pneumonia [Unknown]
  - Malaise [Unknown]
  - Adverse drug reaction [Unknown]
  - Drug ineffective [Unknown]
